FAERS Safety Report 7639992-6 (Version None)
Quarter: 2011Q3

REPORT INFORMATION
  Report Type: 
  Country: None (occurrence: None)
  Receive Date: 20110727
  Receipt Date: 20110719
  Transmission Date: 20111222
  Serious: Yes (Other)
  Sender: FDA-Public Use
  Company Number: DE-B.I. PHARMACEUTICALS,INC./RIDGEFIELD-2011-DE-04200BY

PATIENT
  Sex: Female

DRUGS (1)
  1. TELMISARTAN [Suspect]
     Route: 065

REACTIONS (1)
  - BREAST CANCER [None]
